FAERS Safety Report 5244914-1 (Version None)
Quarter: 2007Q1

REPORT INFORMATION
  Report Type: 
  Country: None (occurrence: None)
  Receive Date: 20061201
  Receipt Date: 20060803
  Transmission Date: 20070707
  Serious: No
  Sender: FDA-Public Use
  Company Number: 2006PV018838

PATIENT
  Age: 62 Year
  Sex: Male
  Weight: 100.6985 kg

DRUGS (6)
  1. BYETTA [Suspect]
     Indication: DIABETES MELLITUS NON-INSULIN-DEPENDENT
     Dosage: 5 MCG;QD;SC
     Route: 058
     Dates: start: 20060725
  2. GLUCOPHAGE [Concomitant]
  3. NOVOLOG [Concomitant]
  4. LANTUS [Concomitant]
  5. PIOGLITAZONE [Concomitant]
  6. GLIPIZIDE [Concomitant]

REACTIONS (2)
  - BLOOD GLUCOSE INCREASED [None]
  - DRUG INEFFECTIVE [None]
